FAERS Safety Report 24203802 (Version 4)
Quarter: 2025Q3

REPORT INFORMATION
  Report Type: Report from Study
  Country: US (occurrence: US)
  Receive Date: 20240813
  Receipt Date: 20250809
  Transmission Date: 20251021
  Serious: Yes (Death, Other)
  Sender: ALEXION PHARMACEUTICALS
  Company Number: 2024A181011

PATIENT
  Age: 86 Year
  Sex: Female
  Weight: 69.1 kg

DRUGS (1)
  1. TAGRISSO [Suspect]
     Active Substance: OSIMERTINIB
     Dosage: 80 MILLIGRAM, QD
     Dates: start: 20240619, end: 20240722

REACTIONS (5)
  - Death [Fatal]
  - Malignant pleural effusion [Fatal]
  - Lung carcinoma cell type unspecified stage IV [Unknown]
  - Pneumonia [Unknown]
  - Disease progression [Unknown]

NARRATIVE: CASE EVENT DATE: 20240722
